FAERS Safety Report 8183685-6 (Version None)
Quarter: 2012Q1

REPORT INFORMATION
  Report Type: 
  Country: None (occurrence: None)
  Receive Date: 20120305
  Receipt Date: 20120227
  Transmission Date: 20120608
  Serious: Yes (Other)
  Sender: FDA-Public Use
  Company Number: PHEH2012US003619

PATIENT
  Sex: Male

DRUGS (10)
  1. DAILY MULTIVIT [Concomitant]
     Dosage: 1 DF, UNK
  2. VITAMIN E [Concomitant]
     Dosage: 1 DF, QD
     Route: 048
  3. ADDERALL 5 [Concomitant]
     Indication: ATTENTION DEFICIT/HYPERACTIVITY DISORDER
     Dosage: 20 MG, QD
     Route: 048
     Dates: start: 20110915
  4. GABAPENTIN [Concomitant]
     Indication: MIGRAINE
     Dosage: 300 MG, TID
     Route: 048
     Dates: start: 20101117
  5. CITALOPRAM HYDROBROMIDE [Concomitant]
     Dosage: 1 DF, QD
  6. PERCOCET [Concomitant]
     Dosage: 1 DF, Q8H
     Route: 048
  7. COPAXONE [Concomitant]
     Dosage: 20 MG, QD
     Route: 058
  8. VITAMIN D [Concomitant]
     Dosage: 1 DF, QD
     Route: 048
  9. GILENYA [Suspect]
     Indication: MULTIPLE SCLEROSIS
     Dosage: 0.5 MG, DAILY
     Route: 048
     Dates: start: 20111107, end: 20120111
  10. LOVAZA [Concomitant]
     Dosage: 1 DF, BID
     Route: 048

REACTIONS (5)
  - FATIGUE [None]
  - DIZZINESS [None]
  - PAIN [None]
  - PRESYNCOPE [None]
  - BALANCE DISORDER [None]
